FAERS Safety Report 7622631-8 (Version None)
Quarter: 2011Q3

REPORT INFORMATION
  Report Type: 
  Country: None (occurrence: None)
  Receive Date: 20110719
  Receipt Date: 20110719
  Transmission Date: 20111222
  Serious: No
  Sender: FDA-Public Use
  Company Number: None

PATIENT
  Age: 26 Year
  Sex: Male
  Weight: 77 kg

DRUGS (2)
  1. OXYTETRACYCLINE [Concomitant]
  2. PROPECIA [Suspect]
     Indication: ANDROGENETIC ALOPECIA
     Dosage: 1MG DAILY PO
     Route: 048
     Dates: start: 20070831, end: 20090831

REACTIONS (25)
  - LOSS OF LIBIDO [None]
  - ERECTILE DYSFUNCTION [None]
  - DISTURBANCE IN ATTENTION [None]
  - AMNESIA [None]
  - VISUAL IMPAIRMENT [None]
  - GENITAL HYPOAESTHESIA [None]
  - PENIS DISORDER [None]
  - ANHEDONIA [None]
  - PRURITUS [None]
  - EJACULATION DISORDER [None]
  - INFERTILITY MALE [None]
  - ANORGASMIA [None]
  - MEMORY IMPAIRMENT [None]
  - MUSCLE ATROPHY [None]
  - GYNAECOMASTIA [None]
  - VISUAL ACUITY REDUCED [None]
  - TESTICULAR ATROPHY [None]
  - FIBROSIS [None]
  - FEELING ABNORMAL [None]
  - STRESS [None]
  - FATIGUE [None]
  - THINKING ABNORMAL [None]
  - DISSOCIATION [None]
  - EMOTIONAL DISORDER [None]
  - HYPERTROPHIC SCAR [None]
